FAERS Safety Report 20495974 (Version 1)
Quarter: 2022Q1

REPORT INFORMATION
  Report Type: Spontaneous
  Country: CA (occurrence: CA)
  Receive Date: 20220221
  Receipt Date: 20220221
  Transmission Date: 20220423
  Serious: Yes (Other)
  Sender: FDA-Public Use
  Company Number: CA-GSKCCFAMERS-Case-01297996_AE-75634

PATIENT
  Age: 70 Year
  Sex: Male

DRUGS (1)
  1. FLUTICASONE FUROATE [Suspect]
     Active Substance: FLUTICASONE FUROATE
     Indication: Product used for unknown indication
     Dosage: UNK UNK, 1D
     Route: 045
     Dates: start: 20220210

REACTIONS (2)
  - Thrombosis [Unknown]
  - Epistaxis [Unknown]

NARRATIVE: CASE EVENT DATE: 20220216
